FAERS Safety Report 13794109 (Version 1)
Quarter: 2017Q3

REPORT INFORMATION
  Report Type: Other
  Country: GB (occurrence: GB)
  Receive Date: 20170726
  Receipt Date: 20170726
  Transmission Date: 20171127
  Serious: Yes (Hospitalization, Other)
  Sender: FDA-Public Use
  Company Number: GB-CLARIS PHARMASERVICES-2023784

PATIENT
  Age: 86 Year
  Sex: Female
  Weight: 53 kg

DRUGS (13)
  1. CARVEDILOL. [Concomitant]
     Active Substance: CARVEDILOL
  2. PARACETAMOL [Concomitant]
     Active Substance: ACETAMINOPHEN
  3. DALTEPARIN [Concomitant]
     Active Substance: DALTEPARIN
  4. OXYCODONE HYDROCHLORIDE. [Concomitant]
     Active Substance: OXYCODONE HYDROCHLORIDE
  5. OMEPRAZOLE. [Suspect]
     Active Substance: OMEPRAZOLE
     Route: 048
     Dates: start: 20170601, end: 20170704
  6. FENTANYL. [Concomitant]
     Active Substance: FENTANYL
  7. ALFACALCIDOL [Concomitant]
     Active Substance: ALFACALCIDOL
  8. FERROUS SULFATE. [Concomitant]
     Active Substance: FERROUS SULFATE
  9. METOCLOPRAMIDE HYDROCHLORIDE. [Concomitant]
     Active Substance: METOCLOPRAMIDE HYDROCHLORIDE
  10. FUROSEMIDE. [Concomitant]
     Active Substance: FUROSEMIDE
  11. CYCLIZINE [Concomitant]
     Active Substance: CYCLIZINE
  12. METRONIDAZOLE. [Suspect]
     Active Substance: METRONIDAZOLE
     Indication: BACTERIAL SEPSIS
     Route: 042
     Dates: start: 20170629, end: 20170702
  13. ONDANSETRON [Concomitant]
     Active Substance: ONDANSETRON

REACTIONS (1)
  - Pancreatitis acute [Not Recovered/Not Resolved]

NARRATIVE: CASE EVENT DATE: 20170629
